FAERS Safety Report 7427764-7 (Version None)
Quarter: 2011Q2

REPORT INFORMATION
  Report Type: 
  Country: None (occurrence: None)
  Receive Date: 20110412
  Receipt Date: 20110405
  Transmission Date: 20111010
  Serious: Yes (Hospitalization)
  Sender: FDA-Public Use
  Company Number: VER-2011-00320

PATIENT
  Age: 43 Year
  Sex: Male
  Weight: 97.5234 kg

DRUGS (8)
  1. CYCLOSET [Suspect]
     Indication: TYPE 2 DIABETES MELLITUS
     Dosage: 1.6 MG (1.6 MG, 1 IN 1 D), ORAL
     Route: 048
  2. PREVACID [Concomitant]
  3. LEVOTHYROXINE SODIUM [Concomitant]
  4. TOPROL-XL [Concomitant]
  5. LISINOPRIL [Concomitant]
  6. JANUVIA [Concomitant]
  7. CRESTOR [Concomitant]
  8. TRILIPIX [Concomitant]

REACTIONS (1)
  - SYNCOPE [None]
